FAERS Safety Report 5018125-9 (Version None)
Quarter: 2006Q2

REPORT INFORMATION
  Report Type: 
  Country: None (occurrence: None)
  Receive Date: 20060530
  Receipt Date: 20060519
  Transmission Date: 20061013
  Serious: Yes (Other)
  Sender: FDA-Public Use
  Company Number: 2006065572

PATIENT
  Age: 56 Year
  Sex: Male
  Weight: 113 kg

DRUGS (9)
  1. FRAGMIN [Suspect]
     Indication: THROMBOSIS PROPHYLAXIS
     Dosage: 5000 I.U. (5000 I.U., QD), SUBCUTANTEOUS
     Route: 058
     Dates: start: 20060512
  2. LOVENOX [Concomitant]
  3. VITAMIN C (VITAMIN C) [Concomitant]
  4. COLACE (DOCUSATE SODIUM) [Concomitant]
  5. FERROUS SULFATE TAB [Concomitant]
  6. LISINOPRIL [Concomitant]
  7. ZOCOR [Concomitant]
  8. MULTIVITAMIN AND MINERAL SUPPLEMENT (MINERALS NOS, VITAMINS NOS) [Concomitant]
  9. NORCO [Concomitant]

REACTIONS (3)
  - PAIN [None]
  - SLEEP DISORDER [None]
  - THROMBOCYTHAEMIA [None]
